FAERS Safety Report 17592821 (Version 1)
Quarter: 2020Q1

REPORT INFORMATION
  Report Type: Spontaneous
  Country: US (occurrence: US)
  Receive Date: 20200327
  Receipt Date: 20200327
  Transmission Date: 20200409
  Serious: Yes (Life-Threatening, Hospitalization, Disabling, Other)
  Sender: FDA-Public Use
  Company Number: US-009507513-2003USA009477

PATIENT
  Age: 50 Year
  Sex: Female

DRUGS (4)
  1. KEFLEX [Suspect]
     Active Substance: CEPHALEXIN
     Indication: PEMPHIGOID
     Dosage: UNK
  2. SIVEXTRO [Suspect]
     Active Substance: TEDIZOLID PHOSPHATE
     Indication: PEMPHIGOID
     Dosage: 200 MILLIGRAM DAILY FOR 6 DAYS
     Route: 048
     Dates: start: 20200221
  3. AZITHROMYCIN ANHYDROUS. [Suspect]
     Active Substance: AZITHROMYCIN ANHYDROUS
     Indication: PEMPHIGOID
     Dosage: UNK
  4. AUGMENTIN [Suspect]
     Active Substance: AMOXICILLIN\CLAVULANATE POTASSIUM
     Indication: PEMPHIGOID
     Dosage: UNK

REACTIONS (4)
  - Drug ineffective for unapproved indication [Not Recovered/Not Resolved]
  - Adverse event [Not Recovered/Not Resolved]
  - Product use in unapproved indication [Unknown]
  - Multiple sclerosis [Not Recovered/Not Resolved]

NARRATIVE: CASE EVENT DATE: 2020
